FAERS Safety Report 4345224-7 (Version None)
Quarter: 2004Q2

REPORT INFORMATION
  Report Type: 
  Country: None (occurrence: None)
  Receive Date: 20040421
  Receipt Date: 20040421
  Transmission Date: 20050107
  Serious: Yes (Life-Threatening)
  Sender: FDA-Public Use
  Company Number: None

PATIENT
  Age: 50 Year
  Sex: Female
  Weight: 36.2878 kg

DRUGS (1)
  1. DEPAKOTE ER [Suspect]
     Indication: CONVULSION
     Dosage: 1000 MG ONCE A DAY ORAL
     Route: 048
     Dates: start: 20030710, end: 20040406

REACTIONS (2)
  - ASCITES [None]
  - HEPATIC FAILURE [None]
